FAERS Safety Report 4993699-2 (Version None)
Quarter: 2006Q2

REPORT INFORMATION
  Report Type: 
  Country: None (occurrence: None)
  Receive Date: 20060505
  Receipt Date: 20060117
  Transmission Date: 20061013
  Serious: Yes (Hospitalization)
  Sender: FDA-Public Use
  Company Number: US-MERCK-0601USA02146

PATIENT
  Age: 73 Year
  Sex: Female

DRUGS (10)
  1. VIOXX [Suspect]
     Route: 048
     Dates: start: 20000404, end: 20040901
  2. DILAUDID [Concomitant]
     Route: 065
  3. LIPITOR [Concomitant]
     Route: 065
  4. ZOLOFT [Concomitant]
     Route: 065
  5. PREVACID [Concomitant]
     Route: 065
  6. TOPROL-XL [Concomitant]
     Route: 065
  7. ADALAT [Concomitant]
     Route: 065
  8. XALATAN [Concomitant]
     Route: 065
  9. LORAZEPAM [Concomitant]
     Route: 065
  10. OXYGEN [Concomitant]
     Route: 065

REACTIONS (19)
  - ACUTE MYOCARDIAL INFARCTION [None]
  - ANGINA UNSTABLE [None]
  - BACK PAIN [None]
  - BARRETT'S OESOPHAGUS [None]
  - CATARACT [None]
  - CORONARY ARTERY DISEASE [None]
  - DIZZINESS [None]
  - DYSPHAGIA [None]
  - DYSPNOEA EXERTIONAL [None]
  - EYE PAIN [None]
  - FAECES DISCOLOURED [None]
  - FLANK PAIN [None]
  - GAIT DISTURBANCE [None]
  - GASTRIC POLYPS [None]
  - HEART DISEASE CONGENITAL [None]
  - PAIN [None]
  - SLEEP APNOEA SYNDROME [None]
  - THYROID DISORDER [None]
  - TREMOR [None]
